FAERS Safety Report 13660488 (Version 2)
Quarter: 2017Q3

REPORT INFORMATION
  Report Type: Report from Study
  Country: CN (occurrence: CN)
  Receive Date: 20170616
  Receipt Date: 20170907
  Transmission Date: 20171127
  Serious: Yes (Hospitalization)
  Sender: FDA-Public Use
  Company Number: CN-ROCHE-1936701

PATIENT
  Sex: Female
  Weight: 50 kg

DRUGS (2)
  1. AVASTIN [Suspect]
     Active Substance: BEVACIZUMAB
     Indication: COLON CANCER
     Route: 041
     Dates: start: 20161121, end: 20170525
  2. AVASTIN [Suspect]
     Active Substance: BEVACIZUMAB
     Route: 041
     Dates: end: 20170526

REACTIONS (4)
  - Protein urine present [Unknown]
  - Intestinal obstruction [Unknown]
  - Urinary tract infection [Unknown]
  - Asthenia [Unknown]
